FAERS Safety Report 9574768 (Version 2)
Quarter: 2013Q4

REPORT INFORMATION
  Report Type: Report from Study
  Country: JP (occurrence: JP)
  Receive Date: 20131001
  Receipt Date: 20131014
  Transmission Date: 20140711
  Serious: Yes (Other)
  Sender: FDA-Public Use
  Company Number: JP-BRISTOL-MYERS SQUIBB COMPANY-19459965

PATIENT
  Age: 66 Year
  Sex: Male
  Weight: 63.5 kg

DRUGS (9)
  1. ABILIFY ORAL SOLUTION [Suspect]
     Indication: BIPOLAR DISORDER
     Dosage: 19-APR13-12MAR13-12MG?13MAY13-24JUN13-15MG?25JUN13-08JUL13-12MG?09JUL13-22JUL13-3MG
     Route: 048
     Dates: start: 20130415, end: 20130722
  2. MICARDIS [Concomitant]
     Dosage: TABLET
     Dates: start: 20130415, end: 20130709
  3. CONIEL [Concomitant]
     Dosage: TABLET
     Dates: start: 20130415, end: 20130709
  4. VALERIN [Concomitant]
     Dates: start: 20130415
  5. BENZALIN [Concomitant]
     Dates: start: 20130415
  6. AMARYL [Concomitant]
     Dosage: AMARYL
     Dates: start: 20130415
  7. RHYTHMY [Concomitant]
     Dosage: TABLET
     Dates: start: 20130504
  8. JANUVIA [Concomitant]
     Dates: start: 20130511
  9. ROZEREM [Concomitant]
     Dosage: TABLET
     Dates: start: 20130513

REACTIONS (1)
  - Deep vein thrombosis [Recovering/Resolving]
